FAERS Safety Report 21088890 (Version 2)
Quarter: 2022Q3

REPORT INFORMATION
  Report Type: Spontaneous
  Country: ES (occurrence: ES)
  Receive Date: 20220715
  Receipt Date: 20220829
  Transmission Date: 20221027
  Serious: Yes (Hospitalization)
  Sender: FDA-Public Use
  Company Number: ES-SAMSUNG BIOEPIS-SB-2022-16017

PATIENT
  Age: 57 Year
  Sex: Female

DRUGS (14)
  1. ETANERCEPT [Suspect]
     Active Substance: ETANERCEPT
     Indication: Stevens-Johnson syndrome
     Dosage: SINGLE DOSE
     Route: 058
  2. ETANERCEPT [Suspect]
     Active Substance: ETANERCEPT
     Indication: Toxic epidermal necrolysis
  3. CYCLOSPORINE [Concomitant]
     Active Substance: CYCLOSPORINE
     Indication: Stevens-Johnson syndrome
     Dosage: FIVE MILLIGRAM/KILOGRAM/DAY AND TAPERING THE DOSE UNTIL DISCONTINUATION
     Route: 048
  4. CYCLOSPORINE [Concomitant]
     Active Substance: CYCLOSPORINE
     Indication: Toxic epidermal necrolysis
  5. IMMUNOGLOBULINS [Concomitant]
     Indication: Stevens-Johnson syndrome
     Dosage: 2 GRAM/KILOGRAM
     Route: 042
  6. IMMUNOGLOBULINS [Concomitant]
     Indication: Toxic epidermal necrolysis
  7. PREDNISONE [Concomitant]
     Active Substance: PREDNISONE
     Indication: Stevens-Johnson syndrome
     Route: 065
  8. PREDNISONE [Concomitant]
     Active Substance: PREDNISONE
     Indication: Toxic epidermal necrolysis
  9. SILVER SULFADIAZINE [Concomitant]
     Active Substance: SILVER SULFADIAZINE
     Indication: Stevens-Johnson syndrome
     Dosage: UNKNOWN, LOCAL TOPICAL CURES
     Route: 061
  10. SILVER SULFADIAZINE [Concomitant]
     Active Substance: SILVER SULFADIAZINE
     Indication: Toxic epidermal necrolysis
  11. POTASSIUM PERMANGANATE [Concomitant]
     Active Substance: POTASSIUM PERMANGANATE
     Indication: Stevens-Johnson syndrome
     Dosage: UNKNOWN, SOLUTION, FORMULATION OF 1/10 POTASSIUM PERMANGANATE
     Route: 065
  12. POTASSIUM PERMANGANATE [Concomitant]
     Active Substance: POTASSIUM PERMANGANATE
     Indication: Toxic epidermal necrolysis
  13. MUPIROCIN [Concomitant]
     Active Substance: MUPIROCIN
     Indication: Stevens-Johnson syndrome
     Dosage: UNKNOWN, FORMULATION OF 1/10 MUPIROCIN
     Route: 065
  14. MUPIROCIN [Concomitant]
     Active Substance: MUPIROCIN
     Indication: Toxic epidermal necrolysis

REACTIONS (3)
  - Pyrexia [Unknown]
  - Dysuria [Unknown]
  - Off label use [Unknown]
